FAERS Safety Report 24466220 (Version 3)
Quarter: 2025Q1

REPORT INFORMATION
  Report Type: Spontaneous
  Country: US (occurrence: US)
  Receive Date: 20241018
  Receipt Date: 20250218
  Transmission Date: 20250408
  Serious: Yes (Hospitalization)
  Sender: RADIUS PHARM
  Company Number: US-RADIUS HEALTH INC.-2024US007884

PATIENT
  Age: 91 Year
  Sex: Male

DRUGS (4)
  1. TYMLOS [Suspect]
     Active Substance: ABALOPARATIDE
     Indication: Osteoporosis
     Route: 058
     Dates: start: 20240815, end: 20240921
  2. TYMLOS [Suspect]
     Active Substance: ABALOPARATIDE
     Indication: Pathological fracture
     Route: 058
  3. TYMLOS [Suspect]
     Active Substance: ABALOPARATIDE
     Indication: Senile osteoporosis
     Route: 058
  4. CALCIUM\VITAMIN D [Concomitant]
     Active Substance: CALCIUM\VITAMIN D
     Indication: Product used for unknown indication

REACTIONS (7)
  - Fall [Unknown]
  - Spinal fracture [Not Recovered/Not Resolved]
  - Rib fracture [Not Recovered/Not Resolved]
  - Therapeutic procedure [Unknown]
  - Loss of personal independence in daily activities [Unknown]
  - Intentional dose omission [Unknown]
  - Malaise [Not Recovered/Not Resolved]

NARRATIVE: CASE EVENT DATE: 20240921
